FAERS Safety Report 16135536 (Version 1)
Quarter: 2019Q1

REPORT INFORMATION
  Report Type: Spontaneous
  Country: DE (occurrence: DE)
  Receive Date: 20190329
  Receipt Date: 20190329
  Transmission Date: 20190418
  Serious: Yes (Hospitalization)
  Sender: FDA-Public Use
  Company Number: DE-ASTRAZENECA-2019SE27955

PATIENT
  Age: 649 Day
  Sex: Female
  Weight: 11.9 kg

DRUGS (4)
  1. SYNAGIS [Suspect]
     Active Substance: PALIVIZUMAB
     Indication: HEART DISEASE CONGENITAL
     Dosage: 170.0MG UNKNOWN
     Route: 030
     Dates: start: 20190312
  2. SYNAGIS [Suspect]
     Active Substance: PALIVIZUMAB
     Indication: HEART DISEASE CONGENITAL
     Dosage: 27-SEP-2018: 170 MG UNKNOWN, 29-OCT-2018: 150 MG UNKNOWN, 29-NOV-2019: 150 MG UNKNOWN, 08-JAN-201...
     Route: 030
     Dates: start: 20180927, end: 20190212
  3. SYNAGIS [Suspect]
     Active Substance: PALIVIZUMAB
     Indication: HEART DISEASE CONGENITAL
     Dosage: 27-SEP-2018: 170 MG UNKNOWN, 29-OCT-2018: 150 MG UNKNOWN, 29-NOV-2019: 150 MG UNKNOWN, 08-JAN-201...
     Route: 030
     Dates: start: 20180927, end: 20190212
  4. SYNAGIS [Suspect]
     Active Substance: PALIVIZUMAB
     Indication: HEART DISEASE CONGENITAL
     Dosage: 170.0MG UNKNOWN
     Route: 030
     Dates: start: 20190312

REACTIONS (3)
  - Oxygen saturation decreased [Unknown]
  - Respiratory failure [Unknown]
  - Respiratory syncytial virus infection [Recovered/Resolved]

NARRATIVE: CASE EVENT DATE: 20190203
